FAERS Safety Report 22147620 (Version 18)
Quarter: 2025Q2

REPORT INFORMATION
  Report Type: Report from Study
  Country: CA (occurrence: CA)
  Receive Date: 20230328
  Receipt Date: 20250416
  Transmission Date: 20250716
  Serious: Yes (Other)
  Sender: JOHNSON AND JOHNSON
  Company Number: CA-JNJFOC-20230364911

PATIENT
  Age: 28 Year
  Sex: Female
  Weight: 98 kg

DRUGS (6)
  1. REMICADE [Suspect]
     Active Substance: INFLIXIMAB
     Indication: Crohn^s disease
     Route: 041
     Dates: start: 20210804
  2. REMICADE [Suspect]
     Active Substance: INFLIXIMAB
     Dosage: WANTS TO BE PUT ON HOLD UNTIL SHE HAS SURGERY DATE, START DATE: 11-DEC-2019
     Route: 041
     Dates: start: 20150113
  3. REMICADE [Suspect]
     Active Substance: INFLIXIMAB
     Dosage: ON 28-MAR-2024, THE PATIENT RECEIVED 64TH INFLIXIMAB, RECOMBINANT INFUSION FOR DOSE 10 MG/KG
     Route: 041
     Dates: start: 20240328
  4. REMICADE [Suspect]
     Active Substance: INFLIXIMAB
     Route: 041
     Dates: start: 20210804
  5. REMICADE [Suspect]
     Active Substance: INFLIXIMAB
     Dosage: EXPIRY: -MAR-2027
     Route: 041
     Dates: start: 20210804
  6. ZOFRAN [Concomitant]
     Active Substance: ONDANSETRON HYDROCHLORIDE
     Indication: Product used for unknown indication

REACTIONS (11)
  - Lower respiratory tract infection [Not Recovered/Not Resolved]
  - HER2 positive breast cancer [Not Recovered/Not Resolved]
  - Metastases to lymph nodes [Unknown]
  - Off label use [Unknown]
  - Malaise [Not Recovered/Not Resolved]
  - Tooth infection [Recovering/Resolving]
  - Palpitations [Recovering/Resolving]
  - Product dose omission issue [Unknown]
  - Nausea [Not Recovered/Not Resolved]
  - Lipase increased [Not Recovered/Not Resolved]
  - Hypertension [Recovering/Resolving]

NARRATIVE: CASE EVENT DATE: 20150113
